FAERS Safety Report 6259159-6 (Version None)
Quarter: 2009Q3

REPORT INFORMATION
  Report Type: 
  Country: None (occurrence: None)
  Receive Date: 20090707
  Receipt Date: 20090630
  Transmission Date: 20100115
  Serious: Yes (Other)
  Sender: FDA-Public Use
  Company Number: US-AVENTIS-200915739US

PATIENT
  Age: 89 Year
  Sex: Male

DRUGS (4)
  1. LANTUS [Suspect]
     Route: 058
  2. OPTICLIK GREY [Suspect]
  3. GLYBURIDE [Concomitant]
     Dosage: DOSE: UNK
  4. UNKNOWN DRUG [Concomitant]
     Dosage: DOSE: UNK

REACTIONS (1)
  - LUNG NEOPLASM MALIGNANT [None]
